FAERS Safety Report 12219727 (Version 1)
Quarter: 2016Q1

REPORT INFORMATION
  Report Type: Report from Study
  Country: US (occurrence: US)
  Receive Date: 20160330
  Receipt Date: 20160330
  Transmission Date: 20160526
  Serious: No
  Sender: FDA-Public Use
  Company Number: PHEH2013US009096

PATIENT
  Age: 3 Year
  Sex: Male
  Weight: 21 kg

DRUGS (11)
  1. RISPERDAL [Concomitant]
     Active Substance: RISPERIDONE
     Indication: ABNORMAL BEHAVIOUR
     Dosage: 0.25 MG, IN THE MORNING AND EVENING
     Route: 065
  2. VIGABATRIN [Concomitant]
     Active Substance: VIGABATRIN
     Indication: PRODUCT USED FOR UNKNOWN INDICATION
     Route: 065
  3. ONFI [Concomitant]
     Active Substance: CLOBAZAM
     Indication: PRODUCT USED FOR UNKNOWN INDICATION
     Dosage: 5 MG IN THE MORNING AND 20 MG IN THE EVENING
     Route: 065
     Dates: start: 201210
  4. AFINITOR [Suspect]
     Active Substance: EVEROLIMUS
     Indication: GANGLIOGLIOMA
     Dosage: 2.5 MG ALTERNATING WITH 5 MG EVERY OTHER DAY
     Route: 048
     Dates: start: 20130301, end: 20130427
  5. AFINITOR [Suspect]
     Active Substance: EVEROLIMUS
     Dosage: 2.5 MG, DAILY
     Route: 048
     Dates: start: 20130520, end: 20141111
  6. MELATONIN [Concomitant]
     Active Substance: MELATONIN
     Indication: SLEEP DISORDER
     Dosage: 2.5 MG, IN THE NIGHT
     Route: 065
  7. TAURINE [Concomitant]
     Active Substance: TAURINE
     Indication: PRODUCT USED FOR UNKNOWN INDICATION
     Dosage: 250 MG, AT NIGHT
     Route: 065
  8. MULTI-VIT [Concomitant]
     Active Substance: VITAMINS
     Indication: PRODUCT USED FOR UNKNOWN INDICATION
     Dosage: UNK UKN, QD
     Route: 065
  9. AFINITOR [Suspect]
     Active Substance: EVEROLIMUS
     Dosage: 2.5 MG, QD (A WEEK AFTER )
     Route: 048
  10. AFINITOR [Suspect]
     Active Substance: EVEROLIMUS
     Dosage: 2.5 MG, QD
     Route: 048
     Dates: start: 20150211
  11. SABRIL [Concomitant]
     Active Substance: VIGABATRIN
     Indication: SEIZURE
     Dosage: 500 MG, IN THE MORNING AND EVENING
     Route: 065

REACTIONS (6)
  - Nasopharyngitis [Recovered/Resolved]
  - Rhinorrhoea [Recovered/Resolved]
  - Sinusitis [Recovered/Resolved]
  - Cough [Recovered/Resolved]
  - Ear infection [Recovered/Resolved]
  - Pyrexia [Recovering/Resolving]

NARRATIVE: CASE EVENT DATE: 20130415
